FAERS Safety Report 4559980-6 (Version None)
Quarter: 2005Q1

REPORT INFORMATION
  Report Type: 
  Country: None (occurrence: None)
  Receive Date: 20050120
  Receipt Date: 20050120
  Transmission Date: 20050727
  Serious: Yes (Other)
  Sender: FDA-Public Use
  Company Number: None

PATIENT

DRUGS (1)
  1. OMNIPAQUE 300 [Suspect]
     Indication: DIAGNOSTIC PROCEDURE
     Dosage: 90 CC ONCE

REACTIONS (2)
  - ERYTHEMA [None]
  - PRURITUS [None]
